FAERS Safety Report 5161682-2 (Version None)
Quarter: 2006Q4

REPORT INFORMATION
  Report Type: 
  Country: None (occurrence: None)
  Receive Date: 20061130
  Receipt Date: 20060607
  Transmission Date: 20070319
  Serious: No
  Sender: FDA-Public Use
  Company Number: US-BRISTOL-MYERS SQUIBB COMPANY-13404041

PATIENT
  Sex: Female

DRUGS (3)
  1. GLUCOPHAGE XR [Suspect]
     Indication: DIABETES MELLITUS
     Dosage: DURATION OF THERAPY - OVER 5 YEARS
  2. METFORMIN HCL [Suspect]
  3. AMARYL [Concomitant]

REACTIONS (1)
  - ABDOMINAL DISCOMFORT [None]
